FAERS Safety Report 5117552-9 (Version None)
Quarter: 2006Q3

REPORT INFORMATION
  Report Type: 
  Country: None (occurrence: None)
  Receive Date: 20060926
  Receipt Date: 20060905
  Transmission Date: 20061208
  Serious: Yes (Other)
  Sender: FDA-Public Use
  Company Number: US200608000728

PATIENT
  Age: 66 Year
  Sex: Female

DRUGS (2)
  1. FORTEO [Suspect]
     Indication: OSTEOPOROSIS
     Dates: start: 20050801
  2. FORETO PEN (FORTEO PEN) PEN, DISPOSABLE [Concomitant]

REACTIONS (6)
  - BLOOD URINE [None]
  - HAEMATURIA [None]
  - NEOPLASM RECURRENCE [None]
  - PHARMACEUTICAL PRODUCT COMPLAINT [None]
  - TRANSITIONAL CELL CARCINOMA [None]
  - URETHRAL NEOPLASM [None]
